FAERS Safety Report 21767266 (Version 2)
Quarter: 2022Q4

REPORT INFORMATION
  Report Type: Spontaneous
  Country: US (occurrence: US)
  Receive Date: 20221222
  Receipt Date: 20221229
  Transmission Date: 20230112
  Serious: No
  Sender: FDA-Public Use
  Company Number: US-SA-SAC20221220001356

PATIENT
  Age: 56 Year
  Sex: Male
  Weight: 102 kg

DRUGS (8)
  1. KEVZARA [Suspect]
     Active Substance: SARILUMAB
     Indication: Rheumatoid arthritis
     Dosage: 200 MG, QOW
     Route: 058
     Dates: start: 20220626
  2. DULOXETINE [Concomitant]
     Active Substance: DULOXETINE
  3. FEXOFENADINE HYDROCHLORIDE [Concomitant]
     Active Substance: FEXOFENADINE HYDROCHLORIDE
  4. LISINOPRIL [Concomitant]
     Active Substance: LISINOPRIL
  5. FISH OIL [Concomitant]
     Active Substance: FISH OIL
  6. METHOTREXATE [Concomitant]
     Active Substance: METHOTREXATE
  7. GINKGO [Concomitant]
     Active Substance: GINKGO
  8. BUPROPION HYDROCHLORIDE [Concomitant]
     Active Substance: BUPROPION HYDROCHLORIDE
     Dosage: UNK

REACTIONS (1)
  - Pain [Unknown]
